FAERS Safety Report 18254676 (Version 4)
Quarter: 2023Q2

REPORT INFORMATION
  Report Type: Report from Study
  Country: US (occurrence: US)
  Receive Date: 20200910
  Receipt Date: 20230630
  Transmission Date: 20230722
  Serious: Yes (Hospitalization, Other)
  Sender: FDA-Public Use
  Company Number: US-AKCEA THERAPEUTICS-2020IS001322

PATIENT

DRUGS (2)
  1. TEGSEDI [Suspect]
     Active Substance: INOTERSEN SODIUM
     Indication: Hereditary neuropathic amyloidosis
     Dosage: 284 MG, QW
     Route: 058
  2. TEGSEDI [Suspect]
     Active Substance: INOTERSEN SODIUM
     Indication: Polyneuropathy
     Dosage: 284 MG, QW
     Route: 058
     Dates: start: 20201026, end: 20221011

REACTIONS (21)
  - Surgery [Unknown]
  - Intestinal obstruction [Not Recovered/Not Resolved]
  - Platelet count increased [Not Recovered/Not Resolved]
  - Urine protein/creatinine ratio increased [Not Recovered/Not Resolved]
  - Protein total increased [Unknown]
  - Urine ketone body present [Unknown]
  - Protein urine present [Unknown]
  - Bacterial test positive [Unknown]
  - Urinary casts present [Unknown]
  - General physical condition abnormal [Unknown]
  - White blood cells urine positive [Unknown]
  - Laboratory test abnormal [Unknown]
  - Blood creatinine abnormal [Not Recovered/Not Resolved]
  - Urine leukocyte esterase positive [Unknown]
  - Urine abnormality [Not Recovered/Not Resolved]
  - Nitrite urine present [Unknown]
  - Crystal urine present [Unknown]
  - pH urine increased [Not Recovered/Not Resolved]
  - Urinary occult blood positive [Unknown]
  - Red blood cells urine positive [Unknown]
  - Fungal test positive [Unknown]

NARRATIVE: CASE EVENT DATE: 20200901
